FAERS Safety Report 7935155-5 (Version None)
Quarter: 2011Q4

REPORT INFORMATION
  Report Type: 
  Country: None (occurrence: None)
  Receive Date: 20111122
  Receipt Date: 20111115
  Transmission Date: 20120403
  Serious: Yes (Other)
  Sender: FDA-Public Use
  Company Number: GXKR2011DE003322

PATIENT

DRUGS (7)
  1. CLINDAMYCIN [Suspect]
     Route: 048
  2. FALITHROM ^HEXAL^ [Concomitant]
  3. AMOXICILLIN [Suspect]
     Route: 048
  4. VOTUM                              /01635402/ [Concomitant]
  5. ESCOR [Concomitant]
  6. DIGITOXIN TAB [Concomitant]
  7. BISOHEXAL PLUS [Concomitant]
     Route: 048

REACTIONS (3)
  - ECZEMA [None]
  - ERYTHEMA [None]
  - RASH [None]
